FAERS Safety Report 16151301 (Version 2)
Quarter: 2019Q2

REPORT INFORMATION
  Report Type: Spontaneous
  Country: JP (occurrence: JP)
  Receive Date: 20190403
  Receipt Date: 20190419
  Transmission Date: 20190711
  Serious: Yes (Hospitalization)
  Sender: FDA-Public Use
  Company Number: JP-ABBVIE-19K-087-2724442-00

PATIENT
  Age: 80 Year
  Sex: Male
  Weight: 48 kg

DRUGS (4)
  1. AZULFIDINE [Suspect]
     Active Substance: SULFASALAZINE
     Indication: RHEUMATOID ARTHRITIS
     Route: 048
     Dates: start: 20160626, end: 20190312
  2. HUMIRA [Suspect]
     Active Substance: ADALIMUMAB
     Indication: RHEUMATOID ARTHRITIS
     Route: 058
     Dates: start: 20160821, end: 20190312
  3. FOLIC ACID. [Concomitant]
     Active Substance: FOLIC ACID
     Indication: PRODUCT USED FOR UNKNOWN INDICATION
     Route: 065
     Dates: end: 20190312
  4. RHEUMATREX [Suspect]
     Active Substance: METHOTREXATE SODIUM
     Indication: RHEUMATOID ARTHRITIS
     Route: 048
     Dates: end: 20190312

REACTIONS (6)
  - Opportunistic infection [Unknown]
  - Interstitial lung disease [Recovering/Resolving]
  - Chest X-ray abnormal [Recovering/Resolving]
  - Lung disorder [Unknown]
  - Collagen disorder [Unknown]
  - Inflammation [Unknown]

NARRATIVE: CASE EVENT DATE: 201903
